FAERS Safety Report 5956654-1 (Version None)
Quarter: 2008Q4

REPORT INFORMATION
  Report Type: 
  Country: None (occurrence: None)
  Receive Date: 20081104
  Receipt Date: 20080512
  Transmission Date: 20090506
  Serious: No
  Sender: FDA-Public Use
  Company Number: 08H-163-0314291-00

PATIENT
  Age: 41 Year
  Sex: Male
  Weight: 117 kg

DRUGS (9)
  1. VANCOMYCIN HCL [Suspect]
     Indication: DRUG USE FOR UNKNOWN INDICATION
     Dosage: 1 GM, ONCE, INTRAVENOUS : 2 GM, TWICE A DAY, INTRAVENOUS
     Route: 042
     Dates: start: 20080511, end: 20080511
  2. VANCOMYCIN HCL [Suspect]
     Indication: MENINGITIS
     Dosage: 1 GM, ONCE, INTRAVENOUS : 2 GM, TWICE A DAY, INTRAVENOUS
     Route: 042
     Dates: start: 20080511, end: 20080511
  3. SODIUM CHLORIDE ADD-VANTAGE SOLUTION (SODIUM CHLORIDE SOLUTION) (SODIU [Concomitant]
  4. NEXIUM [Concomitant]
  5. NICODERM [Concomitant]
  6. XOPENEX [Concomitant]
  7. SODIUM CHLORIDE 0.9% [Concomitant]
  8. ROCEPHIN [Concomitant]
  9. ZOVIRAX [Concomitant]

REACTIONS (3)
  - ERYTHEMA [None]
  - INFUSION SITE URTICARIA [None]
  - PRURITUS [None]
